FAERS Safety Report 5082166-6 (Version None)
Quarter: 2006Q3

REPORT INFORMATION
  Report Type: 
  Country: None (occurrence: None)
  Receive Date: 20060814
  Receipt Date: 20060802
  Transmission Date: 20061208
  Serious: Yes (Life-Threatening, Hospitalization, Disabling)
  Sender: FDA-Public Use
  Company Number: CHNY2006FR02276

PATIENT
  Age: 15 Month
  Sex: Male
  Weight: 11 kg

DRUGS (5)
  1. SCOPODERM TTS (NCH) (HYOSCINE HYDROBROMIDE) TRANS-THERAPEUTIC-SYSTEM [Suspect]
     Dosage: 0.25  DF, QD, TRANSDERMAL
     Route: 062
     Dates: start: 20060615, end: 20060617
  2. ESOMEPRAZOLE (ESOMEPRAZOLE) [Concomitant]
  3. MOTILIUM [Concomitant]
  4. ATARAX [Concomitant]
  5. UVESTEROL (ASCORBIC ACID, ERGOCALCIFEROL, RETINOL, TOCOPHEROL) [Concomitant]

REACTIONS (17)
  - BLINDNESS [None]
  - BLOOD CREATINE PHOSPHOKINASE INCREASED [None]
  - CONVULSION [None]
  - CYTOLYTIC HEPATITIS [None]
  - DISSEMINATED INTRAVASCULAR COAGULATION [None]
  - HYPERTHERMIA MALIGNANT [None]
  - HYPOKALAEMIA [None]
  - INTENTIONAL DRUG MISUSE [None]
  - LABORATORY TEST ABNORMAL [None]
  - LEUKOCYTOSIS [None]
  - METABOLIC ACIDOSIS [None]
  - NEUROLEPTIC MALIGNANT SYNDROME [None]
  - NUCLEAR MAGNETIC RESONANCE IMAGING BRAIN ABNORMAL [None]
  - PRESCRIBED OVERDOSE [None]
  - RENAL FAILURE [None]
  - SHOCK [None]
  - TONIC CLONIC MOVEMENTS [None]
